FAERS Safety Report 21109347 (Version 3)
Quarter: 2025Q4

REPORT INFORMATION
  Report Type: Report from Study
  Country: EU (occurrence: EU)
  Receive Date: 20220721
  Receipt Date: 20251120
  Transmission Date: 20260118
  Serious: Yes (Congenital Anomaly, Other)
  Sender: AUROBINDO
  Company Number: EU-TEVA-2022-DE-2052145

PATIENT

DRUGS (3)
  1. BISOPROLOL [Suspect]
     Active Substance: BISOPROLOL
     Indication: Supraventricular tachycardia
     Dosage: UNK
  2. IVABRADINE [Suspect]
     Active Substance: IVABRADINE
     Indication: Supraventricular tachycardia
     Dosage: 15 MILLIGRAM, UNK
  3. METOPROLOL [Suspect]
     Active Substance: METOPROLOL
     Indication: Supraventricular tachycardia
     Dosage: UNK

REACTIONS (4)
  - Cleft palate [Unknown]
  - Atrial septal defect [Recovered/Resolved]
  - Cardiac septal hypertrophy [Unknown]
  - Foetal exposure during pregnancy [Unknown]
